FAERS Safety Report 14016506 (Version 2)
Quarter: 2019Q1

REPORT INFORMATION
  Report Type: Report from Study
  Country: US (occurrence: US)
  Receive Date: 20170927
  Receipt Date: 20190204
  Transmission Date: 20190417
  Serious: No
  Sender: FDA-Public Use
  Company Number: US-SA-2017SA136449

PATIENT
  Age: 36 Year
  Sex: Female
  Weight: 92.07 kg

DRUGS (6)
  1. LYRICA [Concomitant]
     Active Substance: PREGABALIN
     Indication: NEURALGIA
     Dosage: 100 MG,TID
     Route: 065
     Dates: start: 2015, end: 20170719
  2. ALEMTUZUMAB [Suspect]
     Active Substance: ALEMTUZUMAB
     Indication: MULTIPLE SCLEROSIS
     Dosage: 12 MG, QD
     Route: 041
     Dates: start: 20161010, end: 20161014
  3. ACICLOVIR [Suspect]
     Active Substance: ACYCLOVIR
     Dosage: UNK UNK, UNK
     Route: 065
  4. ZANAFLEX [Concomitant]
     Active Substance: TIZANIDINE HYDROCHLORIDE
     Indication: MUSCLE SPASTICITY
     Dosage: 4 MG,PRN
     Route: 065
     Dates: start: 2014, end: 20170719
  5. VALACICLOVIR [Suspect]
     Active Substance: VALACYCLOVIR HYDROCHLORIDE
     Dosage: UNK UNK, UNK
     Route: 065
  6. AMITRIPTYLINE [Concomitant]
     Active Substance: AMITRIPTYLINE
     Indication: NEURALGIA
     Dosage: 25 MG,HS
     Route: 065
     Dates: start: 2014, end: 20170719

REACTIONS (7)
  - Dizziness [Not Recovered/Not Resolved]
  - Viral infection [Unknown]
  - Laboratory test abnormal [Unknown]
  - Somnolence [Not Recovered/Not Resolved]
  - Exposure during pregnancy [Unknown]
  - Anxiety [Not Recovered/Not Resolved]
  - Condition aggravated [Not Recovered/Not Resolved]

NARRATIVE: CASE EVENT DATE: 2018
